FAERS Safety Report 11122798 (Version 1)
Quarter: 2015Q2

REPORT INFORMATION
  Report Type: Spontaneous
  Country: US (occurrence: None)
  Receive Date: 20150518
  Receipt Date: 20150518
  Transmission Date: 20150821
  Serious: Yes (Life-Threatening)
  Sender: FDA-Public Use
  Company Number: None

PATIENT
  Age: 53 Year
  Sex: Female
  Weight: 129.28 kg

DRUGS (9)
  1. CALCIUM [Concomitant]
     Active Substance: CALCIUM
  2. CELEXA [Concomitant]
     Active Substance: CITALOPRAM HYDROBROMIDE
  3. FLEXERIL [Concomitant]
     Active Substance: CYCLOBENZAPRINE HYDROCHLORIDE
  4. XANAX [Concomitant]
     Active Substance: ALPRAZOLAM
  5. VITAMIN D [Concomitant]
     Active Substance: CHOLECALCIFEROL
  6. MULTI VIT [Concomitant]
  7. HYDRODONDONE [Concomitant]
  8. PROLIA [Suspect]
     Active Substance: DENOSUMAB
     Indication: OSTEOPOROSIS POSTMENOPAUSAL
     Dosage: 1 INJECTION, GIVEN INTO/UNDER THE SKIN
     Dates: start: 20150223
  9. LEVOTHYROXINE [Concomitant]
     Active Substance: LEVOTHYROXINE

REACTIONS (16)
  - Oral infection [None]
  - Anaphylactic shock [None]
  - Urticaria [None]
  - Seizure [None]
  - Dyspnoea [None]
  - Muscle twitching [None]
  - Arthralgia [None]
  - Muscle spasms [None]
  - Jaw disorder [None]
  - Sleep disorder [None]
  - Intestinal obstruction [None]
  - Heart rate irregular [None]
  - Hypocalcaemia [None]
  - Pain in jaw [None]
  - Back pain [None]
  - Memory impairment [None]

NARRATIVE: CASE EVENT DATE: 20150329
